FAERS Safety Report 6842082-3 (Version None)
Quarter: 2010Q3

REPORT INFORMATION
  Report Type: 
  Country: None (occurrence: None)
  Receive Date: 20100714
  Receipt Date: 20070721
  Transmission Date: 20110219
  Serious: No
  Sender: FDA-Public Use
  Company Number: US-PFIZER INC-2007061302

PATIENT
  Sex: Female
  Weight: 65 kg

DRUGS (3)
  1. CHANTIX [Suspect]
     Indication: SMOKING CESSATION THERAPY
     Dosage: EVERYDAY
     Dates: start: 20070701
  2. WELLBUTRIN [Concomitant]
  3. CLORAZEPATE DIPOTASSIUM [Concomitant]
     Dates: end: 20070720

REACTIONS (2)
  - DECREASED APPETITE [None]
  - DEPRESSION [None]
